FAERS Safety Report 4313690-9 (Version None)
Quarter: 2004Q1

REPORT INFORMATION
  Report Type: 
  Country: None (occurrence: None)
  Receive Date: 20040305
  Receipt Date: 20040304
  Transmission Date: 20041129
  Serious: No
  Sender: FDA-Public Use
  Company Number: 400453310

PATIENT
  Sex: Male

DRUGS (5)
  1. MYOCHRYSINE, [Suspect]
     Indication: ARTHRITIS
     Dosage: 10MG X 1; 25MG X1; 50 MG X 3; ALL DOSE VIA MI
     Dates: start: 20040202
  2. MYOCHRYSINE, [Suspect]
     Indication: ARTHRITIS
     Dosage: 10MG X 1; 25MG X1; 50 MG X 3; ALL DOSE VIA MI
     Dates: start: 20040209
  3. MYOCHRYSINE, [Suspect]
     Indication: ARTHRITIS
     Dosage: 10MG X 1; 25MG X1; 50 MG X 3; ALL DOSE VIA MI
     Dates: start: 20040223
  4. MYOCHRYSINE, [Suspect]
     Indication: ARTHRITIS
     Dosage: 10MG X 1; 25MG X1; 50 MG X 3; ALL DOSE VIA MI
     Dates: start: 20040301
  5. IV FLUIDS [Concomitant]

REACTIONS (2)
  - BLOOD PRESSURE DECREASED [None]
  - NITRITOID CRISIS [None]
